FAERS Safety Report 16047663 (Version 1)
Quarter: 2019Q1

REPORT INFORMATION
  Report Type: Spontaneous
  Country: GB (occurrence: GB)
  Receive Date: 20190307
  Receipt Date: 20190307
  Transmission Date: 20190418
  Serious: Yes (Other)
  Sender: FDA-Public Use
  Company Number: GB-PFIZER INC-2019097790

PATIENT
  Sex: Female

DRUGS (2)
  1. LUSTRAL [Suspect]
     Active Substance: SERTRALINE HYDROCHLORIDE
     Indication: BODY DYSMORPHIC DISORDER
     Dosage: 150 MG, DAILY
     Dates: start: 2017
  2. LUSTRAL [Suspect]
     Active Substance: SERTRALINE HYDROCHLORIDE
     Indication: OBSESSIVE-COMPULSIVE DISORDER

REACTIONS (3)
  - Condition aggravated [Not Recovered/Not Resolved]
  - Lymphoedema [Not Recovered/Not Resolved]
  - Swelling [Not Recovered/Not Resolved]
